FAERS Safety Report 9729517 (Version 3)
Quarter: 2015Q3

REPORT INFORMATION
  Report Type: Spontaneous
  Country: US (occurrence: US)
  Receive Date: 20131204
  Receipt Date: 20150804
  Transmission Date: 20151125
  Serious: No
  Sender: FDA-Public Use
  Company Number: US-GILEAD-2009-0021514

PATIENT
  Age: 76 Year
  Sex: Female
  Weight: 63.05 kg

DRUGS (16)
  1. PROVENTIL [Concomitant]
     Active Substance: ALBUTEROL
  2. DIAZEPAM. [Concomitant]
     Active Substance: DIAZEPAM
  3. MIRAPEX [Concomitant]
     Active Substance: PRAMIPEXOLE DIHYDROCHLORIDE
  4. TOPROL XL [Concomitant]
     Active Substance: METOPROLOL SUCCINATE
  5. FLECAINIDE ACETATE. [Concomitant]
     Active Substance: FLECAINIDE ACETATE
  6. VERAMYST [Concomitant]
     Active Substance: FLUTICASONE FUROATE
  7. VITAMIN A + D [Concomitant]
  8. ADVAIR HFA [Concomitant]
     Active Substance: FLUTICASONE PROPIONATE\SALMETEROL XINAFOATE
  9. TUMS [Concomitant]
     Active Substance: CALCIUM CARBONATE
  10. LETAIRIS [Suspect]
     Active Substance: AMBRISENTAN
     Indication: PULMONARY ARTERIAL HYPERTENSION
     Route: 048
     Dates: start: 20090224
  11. APPUREX [Concomitant]
  12. WARFARIN [Concomitant]
     Active Substance: WARFARIN
  13. HYDROCHLOROTHIAZIDE/LOSARTAN POTASSIUM [Concomitant]
  14. PREVACID [Concomitant]
     Active Substance: LANSOPRAZOLE
  15. FUROSEMIDE. [Concomitant]
     Active Substance: FUROSEMIDE
  16. OXYGEN. [Concomitant]
     Active Substance: OXYGEN

REACTIONS (4)
  - Dizziness [Unknown]
  - Hypotension [Unknown]
  - Peripheral swelling [Unknown]
  - Feeling abnormal [Unknown]
